FAERS Safety Report 24372091 (Version 1)
Quarter: 2024Q3

REPORT INFORMATION
  Report Type: Spontaneous
  Country: IN (occurrence: IN)
  Receive Date: 20240927
  Receipt Date: 20240927
  Transmission Date: 20241016
  Serious: Yes (Other)
  Sender: VERITY PHARMACEUTICALS
  Company Number: IN-VER-202400003

PATIENT
  Age: 57 Year
  Sex: Male

DRUGS (1)
  1. BACILLUS CALMETTE-GUERIN SUBSTRAIN RUSSIAN BCG-I LIVE ANTIGEN [Suspect]
     Active Substance: BACILLUS CALMETTE-GUERIN SUBSTRAIN RUSSIAN BCG-I LIVE ANTIGEN
     Indication: Transitional cell carcinoma
     Route: 042

REACTIONS (2)
  - Disseminated Bacillus Calmette-Guerin infection [Unknown]
  - Off label use [Unknown]
